FAERS Safety Report 6274796-0 (Version None)
Quarter: 2009Q3

REPORT INFORMATION
  Report Type: 
  Country: None (occurrence: None)
  Receive Date: 20090717
  Receipt Date: 20090701
  Transmission Date: 20100115
  Serious: Yes (Death)
  Sender: FDA-Public Use
  Company Number: IMP_04478_2009

PATIENT
  Age: 29 Year
  Sex: Female
  Weight: 48.6 kg

DRUGS (2)
  1. BUPROPION HCL [Suspect]
     Indication: DRUG USE FOR UNKNOWN INDICATION
     Dosage: (20 PARTIALLY DISSOLVED TABLETS IN STOMACH, 2 SIMILAR TABLETS IN ESOPHAGUS AND 1 IN PROXIMAL DUODENU
  2. CITALOPRAM HYDROBROMIDE [Concomitant]

REACTIONS (5)
  - CARDIO-RESPIRATORY ARREST [None]
  - DRUG TOXICITY [None]
  - PULMONARY OEDEMA [None]
  - SKIN LACERATION [None]
  - VOMITING [None]
